FAERS Safety Report 20893722 (Version 2)
Quarter: 2022Q3

REPORT INFORMATION
  Report Type: Spontaneous
  Country: JP (occurrence: JP)
  Receive Date: 20220531
  Receipt Date: 20220922
  Transmission Date: 20221027
  Serious: Yes (Other)
  Sender: FDA-Public Use
  Company Number: JP-MSD-2112JPN002025JAA

PATIENT
  Age: 73 Year
  Sex: Female

DRUGS (3)
  1. KEYTRUDA [Suspect]
     Active Substance: PEMBROLIZUMAB
     Indication: Lung squamous cell carcinoma stage III
     Dosage: 200 MILLIGRAM
     Route: 041
  2. CARBOPLATIN [Concomitant]
     Active Substance: CARBOPLATIN
     Indication: Lung squamous cell carcinoma stage III
     Dosage: AREA UNDER THE CURVE: 4.5 MG/ML/MIN
     Route: 065
  3. PACLITAXEL [Concomitant]
     Active Substance: PACLITAXEL
     Indication: Lung squamous cell carcinoma stage III
     Dosage: 90 MG/M2 BODY SURFACE AREA
     Route: 065

REACTIONS (5)
  - Myasthenic syndrome [Recovering/Resolving]
  - Secondary cerebellar degeneration [Recovering/Resolving]
  - Immune-mediated uveitis [Unknown]
  - Immune-mediated hypothyroidism [Unknown]
  - Thyroid disorder [Unknown]
